FAERS Safety Report 18869650 (Version 3)
Quarter: 2021Q2

REPORT INFORMATION
  Report Type: Spontaneous
  Country: US (occurrence: US)
  Receive Date: 20210210
  Receipt Date: 20210415
  Transmission Date: 20210717
  Serious: Yes (Other)
  Sender: FDA-Public Use
  Company Number: US-ROCHE-2766291

PATIENT
  Sex: Female

DRUGS (8)
  1. BEOVU [Suspect]
     Active Substance: BROLUCIZUMAB-DBLL
     Dosage: (LOADING DOSE)
     Route: 047
  2. BEOVU [Suspect]
     Active Substance: BROLUCIZUMAB-DBLL
     Route: 047
  3. LUCENTIS [Suspect]
     Active Substance: RANIBIZUMAB
     Indication: PRODUCT USED FOR UNKNOWN INDICATION
     Route: 065
  4. BEOVU [Suspect]
     Active Substance: BROLUCIZUMAB-DBLL
     Indication: NEOVASCULAR AGE-RELATED MACULAR DEGENERATION
     Dosage: (LOADING DOSE)
     Route: 047
  5. BEOVU [Suspect]
     Active Substance: BROLUCIZUMAB-DBLL
     Dosage: (LOADING DOSE)
     Route: 047
  6. BEOVU [Suspect]
     Active Substance: BROLUCIZUMAB-DBLL
     Route: 047
  7. BEOVU [Suspect]
     Active Substance: BROLUCIZUMAB-DBLL
     Route: 047
  8. BEOVU [Suspect]
     Active Substance: BROLUCIZUMAB-DBLL
     Route: 047

REACTIONS (2)
  - Retinal vein occlusion [Not Recovered/Not Resolved]
  - Subretinal fluid [Unknown]
